FAERS Safety Report 7789255-3 (Version None)
Quarter: 2011Q3

REPORT INFORMATION
  Report Type: 
  Country: None (occurrence: None)
  Receive Date: 20110930
  Receipt Date: 20110921
  Transmission Date: 20111222
  Serious: Yes (Hospitalization, Disabling)
  Sender: FDA-Public Use
  Company Number: US-US-EMD SERONO, INC.-232062J09USA

PATIENT
  Sex: Female
  Weight: 95 kg

DRUGS (7)
  1. REBIF [Suspect]
     Indication: MULTIPLE SCLEROSIS
     Route: 058
     Dates: start: 20081111, end: 20101212
  2. PERCOCET [Concomitant]
     Indication: PAIN
  3. FLEXERIL [Concomitant]
     Indication: TREMOR
  4. SAVELLA [Concomitant]
     Indication: ANXIETY
     Dates: start: 20090901
  5. REBIF [Suspect]
     Route: 058
     Dates: start: 20110821
  6. SAVELLA [Concomitant]
     Indication: FIBROMYALGIA
  7. FLEXERIL [Concomitant]
     Indication: MUSCLE SPASMS

REACTIONS (11)
  - FATIGUE [None]
  - INJECTION SITE REACTION [None]
  - DYSURIA [None]
  - FALL [None]
  - CONSTIPATION [None]
  - JOINT INJURY [None]
  - BLOOD GLUCOSE ABNORMAL [None]
  - PAIN [None]
  - INTERVERTEBRAL DISC PROTRUSION [None]
  - CYSTITIS [None]
  - MULTIPLE SCLEROSIS RELAPSE [None]
